FAERS Safety Report 13578285 (Version 1)
Quarter: 2017Q2

REPORT INFORMATION
  Report Type: Spontaneous
  Country: JP (occurrence: JP)
  Receive Date: 20170524
  Receipt Date: 20170524
  Transmission Date: 20170830
  Serious: Yes (Other)
  Sender: FDA-Public Use
  Company Number: JP-PFIZER INC-2017229571

PATIENT
  Age: 66 Year
  Sex: Male

DRUGS (4)
  1. NEXIUM [Suspect]
     Active Substance: ESOMEPRAZOLE MAGNESIUM
  2. NOVAMIN /00013301/ [Suspect]
     Active Substance: PROCHLORPERAZINE
  3. TRAMSET [Suspect]
     Active Substance: ACETAMINOPHEN\TRAMADOL HYDROCHLORIDE
     Dosage: 4 DF, DAILY
     Route: 048
     Dates: start: 20160812
  4. CELECOX [Suspect]
     Active Substance: CELECOXIB
     Dosage: 200 MG, DAILY
     Route: 048
     Dates: start: 20160701

REACTIONS (2)
  - Thyroid cancer [Unknown]
  - Muscular weakness [Unknown]
